FAERS Safety Report 13419145 (Version 2)
Quarter: 2023Q2

REPORT INFORMATION
  Report Type: Spontaneous
  Country: US (occurrence: US)
  Receive Date: 20170407
  Receipt Date: 20230521
  Transmission Date: 20230721
  Serious: No
  Sender: FDA-Public Use
  Company Number: US-JNJFOC-20170321058

PATIENT
  Age: 22 Year
  Sex: Male

DRUGS (8)
  1. RISPERDAL [Suspect]
     Active Substance: RISPERIDONE
     Indication: Product used for unknown indication
     Route: 048
     Dates: start: 20060211, end: 20061212
  2. RISPERDAL [Suspect]
     Active Substance: RISPERIDONE
     Route: 048
     Dates: start: 20080125, end: 20090927
  3. RISPERDAL [Suspect]
     Active Substance: RISPERIDONE
     Route: 048
     Dates: start: 20100228
  4. RISPERDAL [Suspect]
     Active Substance: RISPERIDONE
     Route: 048
     Dates: start: 20101028
  5. RISPERDAL [Suspect]
     Active Substance: RISPERIDONE
     Route: 048
     Dates: start: 20101214
  6. RISPERDAL [Suspect]
     Active Substance: RISPERIDONE
     Route: 048
     Dates: start: 20111102, end: 20120522
  7. RISPERDAL [Suspect]
     Active Substance: RISPERIDONE
     Dosage: 0.5 MG IN MORNING AND 1 MG AT BEDTIME
     Route: 048
     Dates: start: 20120724, end: 20140331
  8. RISPERDAL [Suspect]
     Active Substance: RISPERIDONE
     Dosage: 0.5 MG IN MORNING AND 1 MG AT BEDTIME
     Route: 048
     Dates: start: 2014

REACTIONS (5)
  - Emotional disorder [Unknown]
  - Gynaecomastia [Unknown]
  - Fatigue [Unknown]
  - Sedation [Unknown]
  - Weight increased [Unknown]

NARRATIVE: CASE EVENT DATE: 20130301
